FAERS Safety Report 4732291-1 (Version None)
Quarter: 2005Q3

REPORT INFORMATION
  Report Type: 
  Country: None (occurrence: None)
  Receive Date: 20050726
  Receipt Date: 20050404
  Transmission Date: 20060218
  Serious: Yes (Other)
  Sender: FDA-Public Use
  Company Number: 05ITY0103

PATIENT
  Age: 71 Year
  Sex: Male

DRUGS (5)
  1. AGGRASTAT [Suspect]
     Indication: ACUTE CORONARY SYNDROME
  2. ASPIRIN [Concomitant]
  3. CLOPIDOGREL SULFATE (CLOPIDOGREL SULFATE) (TABLETS) [Concomitant]
  4. NITRATE (ORGANIC NITRATES) [Concomitant]
  5. CLOPIDOGREL BISULFATE [Concomitant]

REACTIONS (1)
  - STENT OCCLUSION [None]
